FAERS Safety Report 13817430 (Version 1)
Quarter: 2017Q3

REPORT INFORMATION
  Report Type: Spontaneous
  Country: US (occurrence: US)
  Receive Date: 20170731
  Receipt Date: 20170731
  Transmission Date: 20171127
  Serious: Yes (Death, Other)
  Sender: FDA-Public Use
  Company Number: PHHY2017US111530

PATIENT
  Age: 9 Year
  Sex: Female

DRUGS (1)
  1. CEFTRIAXONE. [Suspect]
     Active Substance: CEFTRIAXONE
     Indication: PYREXIA
     Route: 042

REACTIONS (14)
  - Haemolytic anaemia [Fatal]
  - Brain oedema [Fatal]
  - Drug specific antibody [Unknown]
  - Venoocclusive liver disease [Fatal]
  - Hypotension [Fatal]
  - Tachycardia [Fatal]
  - Hypoxic-ischaemic encephalopathy [Fatal]
  - Chromaturia [Fatal]
  - Dyspnoea [Fatal]
  - Multiple organ dysfunction syndrome [Fatal]
  - Disseminated intravascular coagulation [Unknown]
  - Cardiac arrest [Fatal]
  - Oxygen saturation decreased [Fatal]
  - Splenomegaly [Fatal]
